FAERS Safety Report 23545543 (Version 1)
Quarter: 2024Q1

REPORT INFORMATION
  Report Type: Spontaneous
  Country: US (occurrence: None)
  Receive Date: 20240219
  Receipt Date: 20240219
  Transmission Date: 20240410
  Serious: No
  Sender: FDA-Public Use
  Company Number: None

PATIENT
  Age: 71 Year
  Sex: Female
  Weight: 90.72 kg

DRUGS (1)
  1. ODOMZO [Suspect]
     Active Substance: SONIDEGIB
     Indication: Basal cell carcinoma
     Dosage: TAKE 1 CAPSULE BY MOUTH DAILY ON EMTY STOMACH  AT LEAST 1 HOUR BEFORE OR 2 HOURS AFTER ..?
     Route: 048
     Dates: start: 202311

REACTIONS (2)
  - Cystitis [None]
  - Cerebrovascular accident [None]
